FAERS Safety Report 8173274-1 (Version None)
Quarter: 2012Q1

REPORT INFORMATION
  Report Type: 
  Country: None (occurrence: None)
  Receive Date: 20120229
  Receipt Date: 20120221
  Transmission Date: 20120608
  Serious: Yes (Other)
  Sender: FDA-Public Use
  Company Number: US-JNJFOC-20120211097

PATIENT
  Sex: Male

DRUGS (2)
  1. LEVAQUIN [Suspect]
     Route: 048
     Dates: start: 20100201
  2. LEVAQUIN [Suspect]
     Indication: BRONCHITIS
     Route: 048
     Dates: start: 20110101

REACTIONS (4)
  - JOINT INJURY [None]
  - TENDON INJURY [None]
  - MENISCUS LESION [None]
  - LIGAMENT RUPTURE [None]
